FAERS Safety Report 8282327-9 (Version None)
Quarter: 2012Q2

REPORT INFORMATION
  Report Type: 
  Country: None (occurrence: None)
  Receive Date: 20120410
  Receipt Date: 20120327
  Transmission Date: 20120825
  Serious: Yes (Hospitalization, Other)
  Sender: FDA-Public Use
  Company Number: 2012-013028

PATIENT
  Age: 66 Year
  Sex: Female
  Weight: 73.7 kg

DRUGS (6)
  1. NORVASC [Concomitant]
  2. LOTRISONE (LOTRISONE) [Concomitant]
  3. MOBIC [Suspect]
     Indication: ILL-DEFINED DISORDER
     Dosage: 15 MG, ORAL ; 15 MG, ORAL
     Route: 048
  4. ASPIRIN [Suspect]
     Indication: CARDIOVASCULAR EVENT PROPHYLAXIS
     Dosage: 81 MG, QD
  5. XARELTO [Suspect]
     Indication: DEEP VEIN THROMBOSIS
     Dosage: 10 MG, HS, ORAL
     Route: 048
     Dates: start: 20111228, end: 20120109
  6. VESICARE [Concomitant]

REACTIONS (12)
  - CHOLELITHIASIS [None]
  - HAEMOGLOBIN DECREASED [None]
  - ENTEROCOLITIS INFECTIOUS [None]
  - CALCULUS BLADDER [None]
  - INTERVERTEBRAL DISC DEGENERATION [None]
  - GASTROINTESTINAL HAEMORRHAGE [None]
  - LUNG NEOPLASM [None]
  - GASTRITIS [None]
  - RENAL CYST [None]
  - COLITIS [None]
  - HAEMATURIA [None]
  - CLOSTRIDIUM TEST POSITIVE [None]
